FAERS Safety Report 23452931 (Version 2)
Quarter: 2024Q1

REPORT INFORMATION
  Report Type: Report from Study
  Country: DE (occurrence: DE)
  Receive Date: 20240129
  Receipt Date: 20240312
  Transmission Date: 20240409
  Serious: Yes (Death, Other)
  Sender: FDA-Public Use
  Company Number: DE-SA-SAC20240125000125

PATIENT
  Age: 75 Year
  Sex: Female

DRUGS (2)
  1. ALEMTUZUMAB [Suspect]
     Active Substance: ALEMTUZUMAB
     Indication: T-cell prolymphocytic leukaemia
     Dosage: 30 MG AFTER INITIALISATION (3 MG, 10 MG) FREQUENCY - 3 X /WEEK, D1, 3, 5
     Route: 042
     Dates: start: 20230713, end: 20230908
  2. NIPENT [Concomitant]
     Active Substance: PENTOSTATIN
     Indication: T-cell prolymphocytic leukaemia
     Dosage: DOSE/UNIT - 7MG FREQUENCY - WEEKLY
     Route: 042
     Dates: start: 20230825, end: 20230908

REACTIONS (3)
  - Disease progression [Fatal]
  - Thrombocytopenia [Unknown]
  - Product use in unapproved indication [Unknown]
